FAERS Safety Report 17007428 (Version 1)
Quarter: 2019Q4

REPORT INFORMATION
  Report Type: Spontaneous
  Country: DE (occurrence: DE)
  Receive Date: 20191108
  Receipt Date: 20191108
  Transmission Date: 20200122
  Serious: Yes (Other)
  Sender: FDA-Public Use
  Company Number: DE-AUROBINDO-AUR-APL-2019-070874

PATIENT
  Age: 57 Year
  Sex: Male

DRUGS (5)
  1. ELIQUIS [Suspect]
     Active Substance: APIXABAN
     Indication: PRODUCT USED FOR UNKNOWN INDICATION
     Dosage: UNK, BID
     Route: 065
  2. AMLODIPINE [Suspect]
     Active Substance: AMLODIPINE BESYLATE
     Indication: PRODUCT USED FOR UNKNOWN INDICATION
     Dosage: UNK, QD (1/2-0-0)
     Route: 065
  3. METOHEXAL SUCC [Suspect]
     Active Substance: METOPROLOL SUCCINATE
     Dosage: UNK, BID (1-0-1)
     Route: 065
  4. METOHEXAL SUCC [Suspect]
     Active Substance: METOPROLOL SUCCINATE
     Indication: PRODUCT USED FOR UNKNOWN INDICATION
     Dosage: UNK, BID (1-0-1)
     Route: 065
  5. VALSACOR [Suspect]
     Active Substance: VALSARTAN
     Indication: PRODUCT USED FOR UNKNOWN INDICATION
     Dosage: UNK, BID (1-0-1)
     Route: 065

REACTIONS (4)
  - Atrial flutter [Unknown]
  - Atrial fibrillation [Unknown]
  - Performance status decreased [Unknown]
  - Heart rate decreased [Unknown]
